FAERS Safety Report 10501255 (Version 2)
Quarter: 2015Q2

REPORT INFORMATION
  Report Type: Spontaneous
  Country: CH (occurrence: CH)
  Receive Date: 20141007
  Receipt Date: 20150401
  Transmission Date: 20150821
  Serious: Yes (Other)
  Sender: FDA-Public Use
  Company Number: CH-BAYER-2014-147012

PATIENT
  Sex: Female

DRUGS (2)
  1. BETAFERON [Suspect]
     Active Substance: INTERFERON BETA-1B
     Indication: MULTIPLE SCLEROSIS
     Dosage: 62.5 MG, QOD (DOSE REDUCED)
     Dates: start: 201404
  2. BETAFERON [Suspect]
     Active Substance: INTERFERON BETA-1B
     Indication: MULTIPLE SCLEROSIS
     Dosage: UNK
     Dates: start: 20130122

REACTIONS (11)
  - Maternal exposure during pregnancy [None]
  - Eczema [Not Recovered/Not Resolved]
  - Intentional product misuse [None]
  - Visual impairment [Recovered/Resolved]
  - Sensory disturbance [Recovered/Resolved]
  - Injection site erythema [Not Recovered/Not Resolved]
  - Abortion [None]
  - VIIth nerve paralysis [Recovered/Resolved]
  - Multiple sclerosis [Recovered/Resolved]
  - Multiple sclerosis [Recovered/Resolved]
  - Gait disturbance [Recovered/Resolved]

NARRATIVE: CASE EVENT DATE: 201402
